FAERS Safety Report 4705506-3 (Version None)
Quarter: 2005Q2

REPORT INFORMATION
  Report Type: 
  Country: None (occurrence: None)
  Receive Date: 20050628
  Receipt Date: 20050613
  Transmission Date: 20051028
  Serious: Yes (Hospitalization)
  Sender: FDA-Public Use
  Company Number: EWC050543833

PATIENT
  Age: 61 Year
  Sex: Male
  Weight: 70 kg

DRUGS (9)
  1. PEMETREXED [Suspect]
     Indication: NON-SMALL CELL LUNG CANCER
     Dosage: 500 MG/M2
     Dates: start: 20050425
  2. CISPLATIN [Suspect]
     Indication: NON-SMALL CELL LUNG CANCER
     Dosage: 75 MG/M2
     Dates: start: 20050425
  3. ACETAMINOPHEN [Concomitant]
  4. NADROPARINE CALCIUM [Concomitant]
  5. SIMVASTATIN ^ORIFARM^ (SIMVASTATIN RATIOPHARM) [Concomitant]
  6. PIRACETAM [Concomitant]
  7. FOLIC ACID [Concomitant]
  8. OL-AMINE [Concomitant]
  9. DEXAMETHASONE [Concomitant]

REACTIONS (3)
  - PERIPHERAL ISCHAEMIA [None]
  - RENAL IMPAIRMENT [None]
  - RENAL INFARCT [None]
